FAERS Safety Report 25798491 (Version 1)
Quarter: 2025Q3

REPORT INFORMATION
  Report Type: Report from Study
  Country: US (occurrence: US)
  Receive Date: 20250913
  Receipt Date: 20250913
  Transmission Date: 20251021
  Serious: Yes (Other)
  Sender: ABBVIE
  Company Number: US-ABBVIE-6444207

PATIENT
  Age: 58 Year
  Sex: Female

DRUGS (2)
  1. HUMIRA [Suspect]
     Active Substance: ADALIMUMAB
     Indication: Ankylosing spondylitis
     Dosage: FORM STRENGTH: 40 MILLIGRAM?DOSE INCREASED
     Route: 058
     Dates: start: 202409, end: 202501
  2. HUMIRA [Suspect]
     Active Substance: ADALIMUMAB
     Dosage: FORM STRENGTH: 40 MILLIGRAM?START DATE TEXT: --2019 TO  --2020
     Route: 058
     Dates: start: 2019, end: 2024

REACTIONS (12)
  - Spinal column injury [Not Recovered/Not Resolved]
  - Pain in extremity [Unknown]
  - Stress [Not Recovered/Not Resolved]
  - Inflammatory marker increased [Not Recovered/Not Resolved]
  - Drug resistance [Not Recovered/Not Resolved]
  - Road traffic accident [Recovered/Resolved]
  - Therapeutic product effect incomplete [Not Recovered/Not Resolved]
  - Neuropathy peripheral [Recovering/Resolving]
  - Arthritis [Recovering/Resolving]
  - Ankylosing spondylitis [Not Recovered/Not Resolved]
  - Spinal column injury [Not Recovered/Not Resolved]
  - Pain [Recovering/Resolving]

NARRATIVE: CASE EVENT DATE: 20200601
